FAERS Safety Report 7362047-5 (Version None)
Quarter: 2011Q1

REPORT INFORMATION
  Report Type: 
  Country: None (occurrence: None)
  Receive Date: 20110318
  Receipt Date: 20110308
  Transmission Date: 20110831
  Serious: Yes (Hospitalization)
  Sender: FDA-Public Use
  Company Number: US-JNJFOC-20070806646

PATIENT
  Sex: Male
  Weight: 40 kg

DRUGS (4)
  1. REMICADE [Suspect]
     Indication: INFLAMMATION
     Dosage: TOTAL 3 DOSES
     Route: 042
  2. MERCAPTOPURINE [Concomitant]
  3. REMICADE [Suspect]
     Route: 042
  4. MESALAMINE [Concomitant]
     Route: 048

REACTIONS (1)
  - GASTROENTERITIS [None]
